FAERS Safety Report 24690641 (Version 1)
Quarter: 2024Q4

REPORT INFORMATION
  Report Type: Spontaneous
  Country: CN (occurrence: CN)
  Receive Date: 20241203
  Receipt Date: 20241203
  Transmission Date: 20250115
  Serious: Yes (Other)
  Sender: BEIGENE
  Company Number: CN-BEIGENE-BGN-2024-019095

PATIENT

DRUGS (4)
  1. BRUKINSA [Suspect]
     Active Substance: ZANUBRUTINIB
     Indication: Neck mass
     Dosage: 1 DOSAGE FORM, BID, D9-17
     Route: 048
     Dates: start: 20240419
  2. ETOPOSIDE [Suspect]
     Active Substance: ETOPOSIDE
     Indication: Neck mass
     Dosage: 100 MILLIGRAM, D15-17
     Route: 041
     Dates: start: 20240425
  3. CYCLOPHOSPHAMIDE [Suspect]
     Active Substance: CYCLOPHOSPHAMIDE
     Indication: Neck mass
     Dosage: 400 MILLIGRAM
     Route: 041
     Dates: start: 20240413
  4. VINCRISTINE SULFATE [Suspect]
     Active Substance: VINCRISTINE SULFATE
     Indication: Neck mass
     Dosage: 1 MILLIGRAM
     Route: 041
     Dates: start: 20240411

REACTIONS (2)
  - Myelosuppression [Unknown]
  - Off label use [Unknown]

NARRATIVE: CASE EVENT DATE: 20240419
